FAERS Safety Report 23506688 (Version 1)
Quarter: 2024Q1

REPORT INFORMATION
  Report Type: Spontaneous
  Country: US (occurrence: US)
  Receive Date: 20240209
  Receipt Date: 20240209
  Transmission Date: 20240410
  Serious: No
  Sender: FDA-Public Use
  Company Number: US-IBSA PHARMA INC.-2023IBS000250

PATIENT

DRUGS (1)
  1. TIROSINT-SOL [Suspect]
     Active Substance: LEVOTHYROXINE SODIUM
     Indication: Hypothyroidism
     Dosage: 25 MICROGRAM, QD
     Route: 048
     Dates: start: 202301

REACTIONS (7)
  - Weight increased [Unknown]
  - Tremor [Unknown]
  - Fatigue [Unknown]
  - Palpitations [Unknown]
  - Insomnia [Unknown]
  - Irritability [Unknown]
  - Product quality issue [Unknown]

NARRATIVE: CASE EVENT DATE: 20230101
